FAERS Safety Report 10186054 (Version 1)
Quarter: 2014Q2

REPORT INFORMATION
  Report Type: Spontaneous
  Country: US (occurrence: US)
  Receive Date: 20140521
  Receipt Date: 20140521
  Transmission Date: 20141212
  Serious: No
  Sender: FDA-Public Use
  Company Number: US-009507513-1405USA006213

PATIENT
  Age: 10 Year
  Sex: Male
  Weight: 40.82 kg

DRUGS (2)
  1. CLARITIN CHEWABLE TABLETS [Suspect]
     Indication: MULTIPLE ALLERGIES
     Dosage: UNK, UNKNOWN
     Route: 048
  2. CLARITIN CHEWABLE TABLETS [Suspect]
     Indication: SNEEZING
     Dosage: 10 MG, HS
     Route: 048

REACTIONS (1)
  - Gastric disorder [Unknown]
